FAERS Safety Report 24578069 (Version 1)
Quarter: 2024Q4

REPORT INFORMATION
  Report Type: Spontaneous
  Country: US (occurrence: US)
  Receive Date: 20241104
  Receipt Date: 20241104
  Transmission Date: 20250115
  Serious: No
  Sender: ABBVIE
  Company Number: US-ABBVIE-5980143

PATIENT
  Age: 79 Year
  Sex: Male

DRUGS (2)
  1. CYCLOSPORINE [Suspect]
     Active Substance: CYCLOSPORINE
     Indication: Renal disorder
     Route: 047
  2. DUPIXENT [Suspect]
     Active Substance: DUPILUMAB
     Indication: Dermatitis atopic
     Dosage: FORM STRENGTH: 150 MG
     Route: 058

REACTIONS (5)
  - Dry skin [Unknown]
  - Injection site pain [Unknown]
  - Eczema [Unknown]
  - Nephropathy [Unknown]
  - Hypertension [Unknown]
